FAERS Safety Report 24107970 (Version 1)
Quarter: 2024Q3

REPORT INFORMATION
  Report Type: Spontaneous
  Country: US (occurrence: None)
  Receive Date: 20240718
  Receipt Date: 20240718
  Transmission Date: 20241016
  Serious: No
  Sender: ASTRAZENECA
  Company Number: 2024A160587

PATIENT
  Sex: Female

DRUGS (3)
  1. BUDESONIDE [Suspect]
     Active Substance: BUDESONIDE
     Route: 055
  2. DUPIXENT [Suspect]
     Active Substance: DUPILUMAB
  3. EOHILIA [Suspect]
     Active Substance: BUDESONIDE

REACTIONS (4)
  - Malaise [Unknown]
  - Sensation of foreign body [Unknown]
  - Weight decreased [Unknown]
  - Drug ineffective [Unknown]
